FAERS Safety Report 10286471 (Version 1)
Quarter: 2014Q3

REPORT INFORMATION
  Report Type: Spontaneous
  Country: ES (occurrence: ES)
  Receive Date: 20140709
  Receipt Date: 20140709
  Transmission Date: 20150326
  Serious: Yes (Hospitalization, Other)
  Sender: FDA-Public Use
  Company Number: ES-JNJFOC-20140704335

PATIENT
  Age: 34 Year
  Sex: Female

DRUGS (1)
  1. REMICADE [Suspect]
     Active Substance: INFLIXIMAB
     Indication: CROHN^S DISEASE
     Route: 042
     Dates: start: 20130926, end: 20130926

REACTIONS (5)
  - Nausea [Unknown]
  - Dyspnoea [Unknown]
  - Feeling hot [Unknown]
  - Abdominal pain [Unknown]
  - Nervousness [Unknown]

NARRATIVE: CASE EVENT DATE: 20130926
